FAERS Safety Report 8885041 (Version 4)
Quarter: 2013Q1

REPORT INFORMATION
  Report Type: Spontaneous
  Country: US (occurrence: US)
  Receive Date: 20121105
  Receipt Date: 20130214
  Transmission Date: 20140127
  Serious: Yes (Hospitalization)
  Sender: FDA-Public Use
  Company Number: US-BIOGENIDEC-2012BI048487

PATIENT
  Sex: Female

DRUGS (3)
  1. AVONEX [Suspect]
     Indication: MULTIPLE SCLEROSIS
     Route: 030
     Dates: start: 20010720
  2. MEDICATION (NOS) [Concomitant]
     Indication: PRODUCT USED FOR UNKNOWN INDICATION
  3. DILANTIN [Concomitant]

REACTIONS (7)
  - Urinary tract infection [Recovered/Resolved]
  - Anticonvulsant drug level decreased [Recovered/Resolved]
  - Syncope [Recovered/Resolved]
  - Convulsion [Recovered/Resolved]
  - Memory impairment [Recovered/Resolved]
  - Drug dose omission [Recovered/Resolved]
  - Confusional state [Recovered/Resolved]
